FAERS Safety Report 7400978-8 (Version None)
Quarter: 2011Q2

REPORT INFORMATION
  Report Type: 
  Country: None (occurrence: None)
  Receive Date: 20110407
  Receipt Date: 20110325
  Transmission Date: 20111010
  Serious: Yes (Other)
  Sender: FDA-Public Use
  Company Number: PHHY2011BE25390

PATIENT
  Age: 68 Year
  Sex: Female

DRUGS (2)
  1. ZOMETA [Suspect]
     Indication: METASTASES TO BONE
     Dosage: UNK
  2. AREDIA [Suspect]
     Indication: METASTASES TO BONE
     Dosage: UNK
     Dates: start: 19970101

REACTIONS (6)
  - ORAL PAIN [None]
  - TOOTH INFECTION [None]
  - OSTEONECROSIS OF JAW [None]
  - FRACTURE [None]
  - IMPAIRED HEALING [None]
  - HIP FRACTURE [None]
